FAERS Safety Report 7339355-7 (Version None)
Quarter: 2011Q1

REPORT INFORMATION
  Report Type: 
  Country: None (occurrence: None)
  Receive Date: 20110308
  Receipt Date: 20110302
  Transmission Date: 20110831
  Serious: Yes (Other)
  Sender: FDA-Public Use
  Company Number: KP-ROXANE LABORATORIES, INC.-2011-RO-00244RO

PATIENT
  Age: 69 Year
  Sex: Female
  Weight: 65 kg

DRUGS (4)
  1. FENTANYL [Suspect]
     Indication: EPIDURAL ANAESTHESIA
     Dosage: 50 MCG
     Route: 008
  2. MIDAZOLAM [Suspect]
     Indication: ANAESTHETIC PREMEDICATION
     Dosage: 2 MG
     Route: 030
  3. LIDOCAINE [Suspect]
     Indication: EPIDURAL ANAESTHESIA
     Route: 008
  4. ATROPINE [Suspect]
     Indication: ANAESTHETIC PREMEDICATION
     Dosage: 0.5 MG
     Route: 030

REACTIONS (2)
  - INADEQUATE ANALGESIA [None]
  - ATRIAL FIBRILLATION [None]
